FAERS Safety Report 8512397-1 (Version None)
Quarter: 2012Q2

REPORT INFORMATION
  Report Type: 
  Country: None (occurrence: None)
  Receive Date: 20120405
  Receipt Date: 20080806
  Transmission Date: 20120825
  Serious: No
  Sender: FDA-Public Use
  Company Number: PHEH2008US06908

PATIENT
  Sex: Female

DRUGS (1)
  1. RECLAST [Suspect]

REACTIONS (5)
  - INFLUENZA [None]
  - JOINT CREPITATION [None]
  - PYREXIA [None]
  - DECREASED APPETITE [None]
  - NAUSEA [None]
